FAERS Safety Report 9595992 (Version 2)
Quarter: 2013Q4

REPORT INFORMATION
  Report Type: Report from Study
  Country: CA (occurrence: CA)
  Receive Date: 20131004
  Receipt Date: 20131127
  Transmission Date: 20140711
  Serious: Yes (Life-Threatening, Hospitalization)
  Sender: FDA-Public Use
  Company Number: CA-JNJFOC-20131000937

PATIENT
  Age: 70 Year
  Sex: Male
  Weight: 83 kg

DRUGS (2)
  1. REMICADE [Suspect]
     Indication: CROHN^S DISEASE
     Route: 042
     Dates: start: 20080916
  2. REMICADE [Suspect]
     Indication: CROHN^S DISEASE
     Route: 042
     Dates: end: 2013

REACTIONS (3)
  - Prostate cancer [Not Recovered/Not Resolved]
  - Intestinal obstruction [Unknown]
  - Malignant neoplasm progression [Unknown]
